FAERS Safety Report 17070332 (Version 1)
Quarter: 2019Q4

REPORT INFORMATION
  Report Type: Spontaneous
  Country: IR (occurrence: IR)
  Receive Date: 20191125
  Receipt Date: 20191125
  Transmission Date: 20200122
  Serious: Yes (Hospitalization)
  Sender: FDA-Public Use
  Company Number: IR-UNICHEM PHARMACEUTICALS (USA) INC-UCM201911-000743

PATIENT
  Age: 11 Year
  Sex: Male

DRUGS (2)
  1. METRONIDAZOLE. [Suspect]
     Active Substance: METRONIDAZOLE
     Route: 042
  2. METRONIDAZOLE. [Suspect]
     Active Substance: METRONIDAZOLE
     Indication: DIARRHOEA HAEMORRHAGIC
     Route: 048

REACTIONS (11)
  - Aggression [Unknown]
  - Polyneuropathy [Unknown]
  - Dystonia [Recovering/Resolving]
  - Encephalopathy [Unknown]
  - Tinnitus [Unknown]
  - Generalised tonic-clonic seizure [Unknown]
  - Muscle spasticity [Recovering/Resolving]
  - Deafness [Unknown]
  - Dysarthria [Unknown]
  - Toxicity to various agents [Unknown]
  - Depressed level of consciousness [Unknown]
